FAERS Safety Report 10223986 (Version 1)
Quarter: 2014Q2

REPORT INFORMATION
  Report Type: Spontaneous
  Country: US (occurrence: US)
  Receive Date: 20140609
  Receipt Date: 20140609
  Transmission Date: 20141212
  Serious: Yes (Other)
  Sender: FDA-Public Use
  Company Number: US-PFIZER INC-2014154871

PATIENT
  Age: 61 Year
  Sex: Female
  Weight: 52.15 kg

DRUGS (3)
  1. ADVIL [Suspect]
     Dosage: UNK
  2. ASPIRIN [Suspect]
     Dosage: UNK
  3. ALEVE [Suspect]
     Dosage: UNK

REACTIONS (2)
  - Haemorrhage [Unknown]
  - Drug intolerance [Unknown]
